FAERS Safety Report 8042395-6 (Version None)
Quarter: 2012Q1

REPORT INFORMATION
  Report Type: 
  Country: None (occurrence: None)
  Receive Date: 20120112
  Receipt Date: 20120102
  Transmission Date: 20120608
  Serious: Yes (Death)
  Sender: FDA-Public Use
  Company Number: FR-SANOFI-AVENTIS-2012SA000471

PATIENT
  Age: 57 Year
  Sex: Male

DRUGS (8)
  1. ALLOPURINOL [Concomitant]
  2. PLAVIX [Suspect]
     Indication: ATRIAL FIBRILLATION
     Route: 048
  3. IRBESARTAN [Concomitant]
  4. RABEPRAZOLE SODIUM [Concomitant]
  5. PREVISCAN [Suspect]
     Indication: ATRIAL FIBRILLATION
     Route: 065
  6. TENORMIN [Concomitant]
  7. ATORVASTATIN CALCIUM [Concomitant]
  8. TRAMADOL HCL [Concomitant]

REACTIONS (2)
  - GASTROINTESTINAL HAEMORRHAGE [None]
  - INTERNATIONAL NORMALISED RATIO INCREASED [None]
